FAERS Safety Report 15114768 (Version 3)
Quarter: 2018Q3

REPORT INFORMATION
  Report Type: Spontaneous
  Country: JP (occurrence: JP)
  Receive Date: 20180706
  Receipt Date: 20180730
  Transmission Date: 20181010
  Serious: No
  Sender: FDA-Public Use
  Company Number: JP-SA-2018SA176856

PATIENT
  Age: 86 Year
  Sex: Female

DRUGS (1)
  1. CLOPIDOGREL TABLETS 75MG [SANIK] [Suspect]
     Active Substance: CLOPIDOGREL BISULFATE
     Indication: PRODUCT USED FOR UNKNOWN INDICATION
     Dosage: 75 MG, QD
     Route: 048
     Dates: start: 20180221

REACTIONS (2)
  - Condition aggravated [Recovering/Resolving]
  - Asthma [Recovering/Resolving]

NARRATIVE: CASE EVENT DATE: 20180626
